FAERS Safety Report 10248130 (Version 1)
Quarter: 2014Q2

REPORT INFORMATION
  Report Type: Spontaneous
  Country: IE (occurrence: IE)
  Receive Date: 20140619
  Receipt Date: 20140619
  Transmission Date: 20141212
  Serious: Yes (Death)
  Sender: FDA-Public Use
  Company Number: IE-AMGEN INC.-IRLSP2014045934

PATIENT
  Age: 67 Year
  Sex: Female

DRUGS (1)
  1. NEULASTA [Suspect]
     Indication: OVARIAN CANCER
     Dosage: 6 MG, POST CHEMO
     Route: 058
     Dates: start: 20121019

REACTIONS (1)
  - Death [Fatal]
